FAERS Safety Report 12215233 (Version 2)
Quarter: 2016Q2

REPORT INFORMATION
  Report Type: Report from Study
  Country: GB (occurrence: GB)
  Receive Date: 20160328
  Receipt Date: 20160401
  Transmission Date: 20160815
  Serious: Yes (Hospitalization)
  Sender: FDA-Public Use
  Company Number: GB-AMGEN-GBRCT2016036865

PATIENT
  Age: 46 Year

DRUGS (4)
  1. CARFILZOMIB [Suspect]
     Active Substance: CARFILZOMIB
     Indication: PLASMA CELL MYELOMA
     Dosage: 36 MG/M2, PER CHEMO REGIM
     Route: 042
     Dates: start: 20160124
  2. CYCLOPHOSPHAMIDE. [Concomitant]
     Active Substance: CYCLOPHOSPHAMIDE
     Indication: PLASMA CELL MYELOMA
     Dosage: 500 MG, PER CHEMO REGIM
     Route: 048
     Dates: start: 20160129
  3. DEXAMETHASONE. [Concomitant]
     Active Substance: DEXAMETHASONE
     Indication: PLASMA CELL MYELOMA
     Dosage: 40 MG, PER CHEMO REGIM
     Route: 048
     Dates: start: 20160129
  4. LENALIDOMIDE [Concomitant]
     Active Substance: LENALIDOMIDE
     Indication: PLASMA CELL MYELOMA
     Dosage: 25 MG, PER CHEMO REGIM
     Route: 048
     Dates: start: 20160129

REACTIONS (1)
  - Spinal fracture [Not Recovered/Not Resolved]

NARRATIVE: CASE EVENT DATE: 20160318
